FAERS Safety Report 7707753 (Version 2)
Quarter: 2015Q3

REPORT INFORMATION
  Report Type: Spontaneous
  Country: US (occurrence: US)
  Receive Date: 20101214
  Receipt Date: 20150916
  Transmission Date: 20151125
  Serious: No
  Sender: FDA-Public Use
  Company Number: US-ASTRAZENECA-2009SE30963

PATIENT
  Age: 61 Year
  Sex: Female
  Weight: 56.7 kg

DRUGS (6)
  1. METHAMAZOLE [Concomitant]
  2. CRESTOR [Suspect]
     Active Substance: ROSUVASTATIN CALCIUM
     Indication: BLOOD CHOLESTEROL ABNORMAL
     Route: 048
  3. ACTIVILLA [Concomitant]
  4. ASA [Concomitant]
     Active Substance: ASPIRIN
  5. LISINOPRIL. [Concomitant]
     Active Substance: LISINOPRIL
  6. CRESTOR [Suspect]
     Active Substance: ROSUVASTATIN CALCIUM
     Indication: BLOOD CHOLESTEROL ABNORMAL
     Route: 048

REACTIONS (11)
  - Hypersensitivity [Unknown]
  - Off label use [Not Recovered/Not Resolved]
  - Thyroid disorder [Unknown]
  - Fatigue [Unknown]
  - Muscle disorder [Unknown]
  - Blood cholesterol increased [Unknown]
  - Intentional product misuse [Unknown]
  - Peripheral swelling [Unknown]
  - Bite [Unknown]
  - Pain in extremity [Unknown]
  - Lipids increased [Unknown]

NARRATIVE: CASE EVENT DATE: 2003
